FAERS Safety Report 7414297-7 (Version None)
Quarter: 2011Q2

REPORT INFORMATION
  Report Type: 
  Country: None (occurrence: None)
  Receive Date: 20110411
  Receipt Date: 20110411
  Transmission Date: 20111010
  Serious: Yes (Hospitalization)
  Sender: FDA-Public Use
  Company Number: None

PATIENT
  Age: 66 Year
  Sex: Male
  Weight: 127 kg

DRUGS (13)
  1. PEGFILGRASTIM [Concomitant]
  2. DOCETAXEL [Suspect]
     Indication: NON-SMALL CELL LUNG CANCER
     Dosage: 75MG/M2, IV DAYS 1 Q3W
     Route: 042
     Dates: start: 20110112
  3. BENZONATATE [Concomitant]
  4. DEXAMETHASONE [Concomitant]
  5. BEVACIZUMAB [Suspect]
     Indication: NON-SMALL CELL LUNG CANCER
     Dosage: 15MG/KG, IV DAY 1 Q3W
     Route: 042
     Dates: start: 20110112
  6. FINASTERIDE [Concomitant]
  7. OMEPRAZOLE [Concomitant]
  8. PROCHLORPERAZINE TAB [Concomitant]
  9. DICLOXACILLIN [Concomitant]
  10. GEMCITABINE [Suspect]
     Indication: NON-SMALL CELL LUNG CANCER
     Dosage: 900MG/M2, IV DAYS1+8 Q3W
     Route: 042
     Dates: start: 20110112
  11. LEVOTHYROXINE SODIUM [Concomitant]
  12. ASPIRIN [Concomitant]
  13. TIOTROPIUM INHALER [Concomitant]

REACTIONS (3)
  - LUNG INFECTION [None]
  - ATRIAL FIBRILLATION [None]
  - PNEUMONIA [None]
